FAERS Safety Report 17048438 (Version 1)
Quarter: 2019Q4

REPORT INFORMATION
  Report Type: Spontaneous
  Country: US (occurrence: US)
  Receive Date: 20191118
  Receipt Date: 20191118
  Transmission Date: 20200122
  Serious: Yes (Death, Hospitalization)
  Sender: FDA-Public Use
  Company Number: None

PATIENT
  Age: 40 Year
  Sex: Female
  Weight: 194 kg

DRUGS (6)
  1. MEGESTROL [Suspect]
     Active Substance: MEGESTROL
     Indication: UTERINE LEIOMYOMA
     Route: 048
     Dates: start: 20190909, end: 20190920
  2. ALBUTEROL INHALATION SOLUTION [Concomitant]
     Active Substance: ALBUTEROL
  3. BECLOMETHASONE 80MCG/IN [Concomitant]
  4. FERROUS SULFATE 325MG [Concomitant]
     Active Substance: FERROUS SULFATE
  5. MEGESTROL [Suspect]
     Active Substance: MEGESTROL
     Indication: UTERINE HAEMORRHAGE
     Route: 048
     Dates: start: 20190909, end: 20190920
  6. BUTALBITAL/ACETAMINOPHEN/CAFFEINE 50-325-40MG [Concomitant]

REACTIONS (4)
  - Endometrial ablation [None]
  - Cardio-respiratory arrest [None]
  - Pulmonary embolism [None]
  - Procedural complication [None]

NARRATIVE: CASE EVENT DATE: 20190920
